FAERS Safety Report 8481406-0 (Version None)
Quarter: 2012Q2

REPORT INFORMATION
  Report Type: 
  Country: None (occurrence: None)
  Receive Date: 20120625
  Receipt Date: 20120512
  Transmission Date: 20120825
  Serious: Yes (Other)
  Sender: FDA-Public Use
  Company Number: 7140173

PATIENT
  Age: 2 Year
  Sex: Male

DRUGS (1)
  1. LEVOTHYROXINE SODIUM [Suspect]
     Indication: PRODUCT USED FOR UNKNOWN INDICATION

REACTIONS (3)
  - ACCIDENTAL DRUG INTAKE BY CHILD [None]
  - TOXICITY TO VARIOUS AGENTS [None]
  - INFECTIOUS MONONUCLEOSIS [None]
